FAERS Safety Report 4467997-5 (Version None)
Quarter: 2004Q4

REPORT INFORMATION
  Report Type: 
  Country: None (occurrence: None)
  Receive Date: 20041004
  Receipt Date: 20041004
  Transmission Date: 20050328
  Serious: Yes (Other)
  Sender: FDA-Public Use
  Company Number: None

PATIENT
  Sex: Male
  Weight: 55.7924 kg

DRUGS (12)
  1. PAMIDRONATE DISODIUM [Suspect]
     Indication: METASTASES TO BONE
     Dosage: 90MG  Q4WEEKS  IV
     Route: 042
     Dates: start: 20040916, end: 20040227
  2. PAMIDRONATE DISODIUM [Suspect]
     Indication: PROSTATE CANCER METASTATIC
     Dosage: 90MG  Q4WEEKS  IV
     Route: 042
     Dates: start: 20040916, end: 20040227
  3. ZOLEDRONIC ACID [Suspect]
     Indication: METASTASES TO BONE
     Dosage: 4 MG Q4WEEKS IV
     Route: 042
     Dates: start: 20040315, end: 20040729
  4. ZOLEDRONIC ACID [Suspect]
     Indication: PROSTATE CANCER METASTATIC
     Dosage: 4 MG Q4WEEKS IV
     Route: 042
     Dates: start: 20040315, end: 20040729
  5. CASODEX [Concomitant]
  6. ZOLADEX [Concomitant]
  7. MEGACE [Concomitant]
  8. ZOLADES [Concomitant]
  9. TAXOTERE [Concomitant]
  10. EMCYT [Concomitant]
  11. KETOCONIZOLE [Concomitant]
  12. HYDROCORTISONE [Concomitant]

REACTIONS (5)
  - BONE DISORDER [None]
  - BONE INFECTION [None]
  - JAW DISORDER [None]
  - OSTEONECROSIS [None]
  - TOOTH INFECTION [None]
